FAERS Safety Report 20747907 (Version 1)
Quarter: 2022Q2

REPORT INFORMATION
  Report Type: Spontaneous
  Country: US (occurrence: US)
  Receive Date: 20220425
  Receipt Date: 20220425
  Transmission Date: 20220721
  Serious: No
  Sender: FDA-Public Use
  Company Number: US-JNJFOC-20220439515

PATIENT
  Age: 70 Year
  Sex: Male

DRUGS (1)
  1. BALVERSA [Suspect]
     Active Substance: ERDAFITINIB
     Indication: Product used for unknown indication
     Dosage: 3 MG TAB TAKE 2 TABLETS BY MOUTH EVERY DAY
     Route: 048
     Dates: start: 20210617

REACTIONS (1)
  - Adverse drug reaction [Unknown]
